APPROVED DRUG PRODUCT: CAPECITABINE
Active Ingredient: CAPECITABINE
Strength: 500MG
Dosage Form/Route: TABLET;ORAL
Application: A202593 | Product #002 | TE Code: AB
Applicant: ACCORD HEALTHCARE INC
Approved: Apr 23, 2015 | RLD: No | RS: No | Type: RX